FAERS Safety Report 8764076 (Version 1)
Quarter: 2012Q4

REPORT INFORMATION
  Report Type: 
  Country: US (occurrence: US)
  Receive Date: 20120831
  Receipt Date: 20120831
  Transmission Date: 20130627
  Serious: Yes (Other)
  Sender: FDA-Public Use
  Company Number: US-SANOFI-AVENTIS-2012SA059666

PATIENT
  Sex: Male
  Weight: 88 kg

DRUGS (3)
  1. PLAVIX [Suspect]
     Indication: HEART ATTACK
     Route: 048
     Dates: start: 2007
  2. PLAVIX [Suspect]
     Indication: STENT PLACEMENT
     Route: 048
     Dates: start: 2007
  3. FUROSEMIDE [Concomitant]

REACTIONS (2)
  - Coronary artery occlusion [Unknown]
  - Asthenia [Unknown]
